FAERS Safety Report 7427832-X (Version None)
Quarter: 2011Q2

REPORT INFORMATION
  Report Type: 
  Country: None (occurrence: None)
  Receive Date: 20110413
  Receipt Date: 20110329
  Transmission Date: 20111010
  Serious: Yes (Other)
  Sender: FDA-Public Use
  Company Number: KR-JNJFOC-20110402089

PATIENT

DRUGS (5)
  1. ANTIFUNGAL MEDICATION (ANTIFUNGALS) [Concomitant]
  2. G-CSF (GRANULOCYTE COLONY STIMULATING FACTOR) [Concomitant]
  3. ANTIBIOTIC UNSPECIFIED (ANTIBIOTICS) [Concomitant]
  4. ANTIVIRAL (OTHER ANTIVIRALS) [Concomitant]
  5. DECITABINE (DECITABINE) LYOPHILIZED POWDER [Suspect]
     Indication: MYELODYSPLASTIC SYNDROME
     Dosage: 20 MG/M2, IN 1 DAY,

REACTIONS (1)
  - ENTEROCOCCUS TEST POSITIVE [None]
